FAERS Safety Report 11410720 (Version 1)
Quarter: 2015Q3

REPORT INFORMATION
  Report Type: Spontaneous
  Country: US (occurrence: US)
  Receive Date: 20150824
  Receipt Date: 20150824
  Transmission Date: 20151125
  Serious: Yes (Other)
  Sender: FDA-Public Use
  Company Number: US-PFIZER INC-2015269637

PATIENT
  Age: 55 Year
  Sex: Female

DRUGS (2)
  1. PALBOCICLIB [Suspect]
     Active Substance: PALBOCICLIB
     Dosage: UNK UNK, CYCLIC
     Dates: start: 20150607
  2. LETROZOLE. [Suspect]
     Active Substance: LETROZOLE
     Dosage: UNK UNK, CYCLIC
     Dates: start: 20150607

REACTIONS (5)
  - Renal impairment [Unknown]
  - Neutropenia [Recovered/Resolved]
  - Anaemia [Unknown]
  - Hyperglycaemia [Unknown]
  - Creatinine renal clearance decreased [Unknown]
